FAERS Safety Report 13001002 (Version 2)
Quarter: 2017Q1

REPORT INFORMATION
  Report Type: Spontaneous
  Country: US (occurrence: US)
  Receive Date: 20161206
  Receipt Date: 20170201
  Transmission Date: 20170428
  Serious: No
  Sender: FDA-Public Use
  Company Number: US-BRISTOL-MYERS SQUIBB COMPANY-BMS-2016-102123

PATIENT
  Sex: Female

DRUGS (2)
  1. ORENCIA [Suspect]
     Active Substance: ABATACEPT
     Indication: SJOGREN^S SYNDROME
     Route: 065
  2. ACTEMRA [Concomitant]
     Active Substance: TOCILIZUMAB
     Indication: SJOGREN^S SYNDROME
     Route: 065

REACTIONS (3)
  - Stomatitis [Recovered/Resolved]
  - Product use issue [Unknown]
  - Dry mouth [Recovered/Resolved]
